FAERS Safety Report 21401286 (Version 2)
Quarter: 2022Q4

REPORT INFORMATION
  Report Type: Spontaneous
  Country: FR (occurrence: FR)
  Receive Date: 20221003
  Receipt Date: 20221007
  Transmission Date: 20230112
  Serious: Yes (Death, Congenital Anomaly, Other)
  Sender: FDA-Public Use
  Company Number: FR-009507513-1706FRA009602

PATIENT
  Age: 3 Day
  Sex: Female
  Weight: 2.27 kg

DRUGS (28)
  1. EZETIMIBE\SIMVASTATIN [Suspect]
     Active Substance: EZETIMIBE\SIMVASTATIN
     Indication: Product used for unknown indication
     Dosage: UNK
     Route: 064
     Dates: end: 20150220
  2. EZETIMIBE\SIMVASTATIN [Suspect]
     Active Substance: EZETIMIBE\SIMVASTATIN
     Indication: Foetal exposure during pregnancy
  3. IRBESARTAN [Suspect]
     Active Substance: IRBESARTAN
     Indication: Product used for unknown indication
     Dosage: UNK
     Route: 064
     Dates: end: 20150220
  4. IRBESARTAN [Suspect]
     Active Substance: IRBESARTAN
     Indication: Foetal exposure during pregnancy
  5. RAMIPRIL [Suspect]
     Active Substance: RAMIPRIL
     Indication: Product used for unknown indication
     Dosage: UNK
     Route: 064
     Dates: end: 20150220
  6. RAMIPRIL [Suspect]
     Active Substance: RAMIPRIL
     Indication: Foetal exposure during pregnancy
  7. NEORAL [Suspect]
     Active Substance: CYCLOSPORINE
     Indication: Glomerulonephritis membranous
     Dosage: 200 MG, 2X/DAY (BID)
     Route: 064
     Dates: start: 20150220, end: 20150818
  8. ASPIRIN DL-LYSINE [Suspect]
     Active Substance: ASPIRIN DL-LYSINE
     Indication: Product used for unknown indication
     Dosage: 100 MG, ONCE DAILY (QD)
     Route: 064
     Dates: end: 20150818
  9. ASPIRIN DL-LYSINE [Suspect]
     Active Substance: ASPIRIN DL-LYSINE
     Indication: Foetal exposure during pregnancy
  10. PROZAC [Suspect]
     Active Substance: FLUOXETINE HYDROCHLORIDE
     Indication: Product used for unknown indication
     Dosage: 20 MG, ONCE DAILY (QD)
     Route: 064
     Dates: start: 20150220, end: 20150818
  11. PROZAC [Suspect]
     Active Substance: FLUOXETINE HYDROCHLORIDE
     Indication: Foetal exposure during pregnancy
  12. PRIMPERAN [Suspect]
     Active Substance: METOCLOPRAMIDE HYDROCHLORIDE
     Indication: Product used for unknown indication
     Dosage: 10 MG, 3X/DAY (TID) STRENGTH:30 MG
     Route: 064
     Dates: start: 20150220, end: 20150818
  13. PRIMPERAN [Suspect]
     Active Substance: METOCLOPRAMIDE HYDROCHLORIDE
     Indication: Foetal exposure during pregnancy
  14. INSULIN NOS [Suspect]
     Active Substance: INSULIN NOS
     Indication: Product used for unknown indication
     Dosage: UNK
     Route: 064
     Dates: start: 20150220, end: 20150818
  15. INSULIN NOS [Suspect]
     Active Substance: INSULIN NOS
     Indication: Foetal exposure during pregnancy
  16. SPIRONOLACTONE [Suspect]
     Active Substance: SPIRONOLACTONE
     Indication: Product used for unknown indication
     Dosage: UNK
     Route: 064
     Dates: end: 20150220
  17. SPIRONOLACTONE [Suspect]
     Active Substance: SPIRONOLACTONE
     Indication: Foetal exposure during pregnancy
  18. SODIUM BICARBONATE [Suspect]
     Active Substance: SODIUM BICARBONATE
     Indication: Product used for unknown indication
     Dosage: 1 G, BID
     Route: 064
     Dates: start: 20150220, end: 20150818
  19. SODIUM BICARBONATE [Suspect]
     Active Substance: SODIUM BICARBONATE
     Indication: Foetal exposure during pregnancy
  20. ALPRAZOLAM [Suspect]
     Active Substance: ALPRAZOLAM
     Indication: Product used for unknown indication
     Dosage: 25 MG, ONCE DAILY (QD)
     Route: 064
     Dates: start: 20150220, end: 20150818
  21. ALPRAZOLAM [Suspect]
     Active Substance: ALPRAZOLAM
     Indication: Foetal exposure during pregnancy
  22. SPIRAMYCIN [Suspect]
     Active Substance: SPIRAMYCIN
     Indication: Product used for unknown indication
     Dosage: UNK
     Route: 064
     Dates: start: 20150220, end: 20150818
  23. SPIRAMYCIN [Suspect]
     Active Substance: SPIRAMYCIN
     Indication: Foetal exposure during pregnancy
  24. FERROUS SULFATE\FOLIC ACID [Suspect]
     Active Substance: FERROUS SULFATE\FOLIC ACID
     Indication: Product used for unknown indication
     Dosage: 2 DF, QD (1/DAY)
     Route: 064
     Dates: end: 20150818
  25. FERROUS SULFATE\FOLIC ACID [Suspect]
     Active Substance: FERROUS SULFATE\FOLIC ACID
     Indication: Foetal exposure during pregnancy
  26. CHOLECALCIFEROL [Suspect]
     Active Substance: CHOLECALCIFEROL
     Indication: Product used for unknown indication
     Dosage: 20000 IU, MONTHLY (QM) 666.6667 IU , FROM: 3RD TRIMESTER OF PREGNANCY
     Route: 064
     Dates: end: 20150818
  27. CHOLECALCIFEROL [Suspect]
     Active Substance: CHOLECALCIFEROL
     Indication: Foetal exposure during pregnancy
  28. ERGOCALCIFEROL [Suspect]
     Active Substance: ERGOCALCIFEROL
     Dosage: 2000 INTERNATIONAL UNIT, QM
     Route: 064
     Dates: end: 20150818

REACTIONS (7)
  - Congenital musculoskeletal disorder [Fatal]
  - Dysmorphism [Fatal]
  - Disseminated intravascular coagulation [Fatal]
  - Multiple organ dysfunction syndrome [Fatal]
  - Low birth weight baby [Fatal]
  - Talipes [Fatal]
  - Foetal exposure during pregnancy [Fatal]

NARRATIVE: CASE EVENT DATE: 20150220
